FAERS Safety Report 4795717-3 (Version None)
Quarter: 2005Q4

REPORT INFORMATION
  Report Type: 
  Country: None (occurrence: None)
  Receive Date: 20051006
  Receipt Date: 20051006
  Transmission Date: 20060501
  Serious: No
  Sender: FDA-Public Use
  Company Number: None

PATIENT
  Sex: Male
  Weight: 70 kg

DRUGS (7)
  1. FOSAMPRENAVIR 700MG           GSK [Suspect]
     Indication: ACQUIRED IMMUNODEFICIENCY SYNDROME
     Dosage: 700MG BID PO
     Route: 048
     Dates: start: 20050525, end: 20050706
  2. RITONAVIR 100MG            ABBOTT [Suspect]
     Indication: ACQUIRED IMMUNODEFICIENCY SYNDROME
     Dosage: 100MG BID PO
     Route: 048
     Dates: start: 20050525, end: 20050706
  3. DIDANOSINE [Concomitant]
  4. TENOFOVIR [Concomitant]
  5. EMTRICITABINE [Concomitant]
  6. CELECOXIB [Concomitant]
  7. MULTI-VITAMIN [Concomitant]

REACTIONS (3)
  - CHEST PAIN [None]
  - DIZZINESS [None]
  - SINUS BRADYCARDIA [None]
